FAERS Safety Report 23621135 (Version 2)
Quarter: 2024Q4

REPORT INFORMATION
  Report Type: Report from Study
  Country: VN (occurrence: VN)
  Receive Date: 20240312
  Receipt Date: 20241118
  Transmission Date: 20250115
  Serious: Yes (Death)
  Sender: ROCHE
  Company Number: VN-ROCHE-3521366

PATIENT
  Age: 69 Year
  Sex: Male

DRUGS (4)
  1. TECENTRIQ [Suspect]
     Active Substance: ATEZOLIZUMAB
     Indication: Non-small cell lung cancer metastatic
     Route: 041
     Dates: start: 20231128, end: 20240110
  2. MVASI [Suspect]
     Active Substance: BEVACIZUMAB-AWWB
     Indication: Non-small cell lung cancer metastatic
     Route: 065
  3. CARBOPLATIN [Suspect]
     Active Substance: CARBOPLATIN
     Indication: Non-small cell lung cancer metastatic
     Route: 065
  4. PACLITAXEL [Suspect]
     Active Substance: PACLITAXEL
     Indication: Non-small cell lung cancer metastatic
     Route: 065

REACTIONS (2)
  - Non-small cell lung cancer metastatic [Fatal]
  - General physical health deterioration [Fatal]

NARRATIVE: CASE EVENT DATE: 20240215
